FAERS Safety Report 5322093-X (Version None)
Quarter: 2007Q2

REPORT INFORMATION
  Report Type: 
  Country: None (occurrence: None)
  Receive Date: 20070222
  Receipt Date: 20060810
  Transmission Date: 20071010
  Serious: Yes (Other)
  Sender: FDA-Public Use
  Company Number: HQWYE334310AUG06

PATIENT
  Age: 64 Year
  Sex: Female

DRUGS (8)
  1. EFFEXOR [Suspect]
     Indication: MIGRAINE PROPHYLAXIS
     Dosage: 225 MG 1X PER 1 DAY; ORAL
     Route: 048
  2. EFFEXOR [Suspect]
     Dosage: ^SLOWLY TITRATED HERSELF OFF THE THERAPY^; ORAL
     Route: 048
  3. PAXIL [Suspect]
     Indication: MIGRAINE PROPHYLAXIS
     Dosage: 60 MG 1 X PER 1 DAY; ORAL
     Route: 048
  4. PAXIL [Suspect]
     Dosage: ^SLOWLY TITRATED HERSELF OFF THE THERAPY^, ORAL
     Route: 048
  5. VICODIN [Concomitant]
  6. TAGMET (CIMETIDINE) [Concomitant]
  7. ALEVE [Concomitant]
  8. BENADRYL [Concomitant]

REACTIONS (1)
  - SUICIDAL IDEATION [None]
